FAERS Safety Report 7198502-0 (Version None)
Quarter: 2010Q4

REPORT INFORMATION
  Report Type: 
  Country: None (occurrence: None)
  Receive Date: 20101227
  Receipt Date: 20101221
  Transmission Date: 20110411
  Serious: Yes (Death, Hospitalization, Other)
  Sender: FDA-Public Use
  Company Number: PHHY2010US70732

PATIENT
  Sex: Female

DRUGS (21)
  1. MYFORTIC [Suspect]
     Dosage: 360 MG, BID
     Route: 048
     Dates: end: 20100908
  2. ALBUTEROL SULFATE [Concomitant]
     Dosage: FOUR PUFFS INHALED EVERY FOUR
  3. AMIODARONE HYDROCHLORIDE [Concomitant]
     Dosage: 200 MG
     Route: 048
  4. ASPIRIN [Concomitant]
     Dosage: 81 MG
     Route: 048
  5. LIPITOR [Concomitant]
     Dosage: 20 MG ONCE A DAY
     Route: 048
  6. VITAMIN B COMPLEX CAP [Concomitant]
     Route: 048
  7. CHOLECALCIFEROL [Concomitant]
     Route: 048
  8. LASIX [Concomitant]
     Dosage: 40 MG
     Route: 048
  9. COMBIVENT [Concomitant]
     Dosage: TWO PUFFS INHALED TWICE DAILY
  10. LIDODERM [Concomitant]
     Dosage: CHANGE PATCH EVERY 12 HOURS.
  11. MEGESTROL ACETATE [Concomitant]
     Dosage: 800 MGONCE DAILY
     Route: 048
  12. MULTI-VITAMINS [Concomitant]
     Route: 048
  13. PRILOSEC [Concomitant]
     Dosage: 20 MG, DAILY
     Route: 048
  14. DITROPAN XL [Concomitant]
     Dosage: 5 MG
  15. FERREX [Concomitant]
     Dosage: 150 MG, TWO TIMES A DAY
     Route: 048
  16. KLOR-CON [Concomitant]
     Dosage: TWO TIMES A DAY
     Route: 048
  17. PREDNISONE [Concomitant]
     Dosage: 5 MG ONCE A DAY
     Route: 048
  18. LYRICA [Concomitant]
     Dosage: 25 MG ONCE A DAY
     Route: 048
  19. SENOKOT [Concomitant]
     Indication: CONSTIPATION
     Dosage: UNK
     Route: 048
  20. ZOLOFT [Concomitant]
     Dosage: 100 MG ONCE A DAY
  21. RENVELA [Concomitant]
     Dosage: 800 MG ONCE A DAY
     Route: 048

REACTIONS (23)
  - ARTERIOSCLEROSIS CORONARY ARTERY [None]
  - ASCITES [None]
  - BRAIN DEATH [None]
  - BRAIN INJURY [None]
  - BRAIN OEDEMA [None]
  - CHEST DISCOMFORT [None]
  - CHOLELITHIASIS [None]
  - COMA SCALE ABNORMAL [None]
  - CONVULSION [None]
  - FAECALOMA [None]
  - GALLBLADDER OEDEMA [None]
  - GASTROINTESTINAL OEDEMA [None]
  - HEADACHE [None]
  - HYPOPNOEA [None]
  - HYPOXIC-ISCHAEMIC ENCEPHALOPATHY [None]
  - INTESTINAL OBSTRUCTION [None]
  - NERVOUS SYSTEM DISORDER [None]
  - PANCREATIC ATROPHY [None]
  - PCO2 DECREASED [None]
  - PLEURAL EFFUSION [None]
  - RIB FRACTURE [None]
  - SPINAL COMPRESSION FRACTURE [None]
  - UNRESPONSIVE TO STIMULI [None]
